FAERS Safety Report 4509127-7 (Version None)
Quarter: 2004Q4

REPORT INFORMATION
  Report Type: 
  Country: None (occurrence: None)
  Receive Date: 20041025
  Receipt Date: 20040210
  Transmission Date: 20050328
  Serious: Yes (Other)
  Sender: FDA-Public Use
  Company Number: NSADSS2003019057

PATIENT
  Age: 54 Year
  Sex: Male
  Weight: 62.5964 kg

DRUGS (5)
  1. REMICADE [Suspect]
     Indication: CROHN'S DISEASE
     Dosage: 1 IN 1 AS NECESSARY, INTRAVENOUS DRIP
     Route: 041
  2. ASACOL [Concomitant]
  3. FLAGYL [Concomitant]
  4. FIBERCON (POLYCARBOPHIL CALCIUM) [Concomitant]
  5. LEVEQUAN (LEVOFLOXACIN) [Concomitant]

REACTIONS (4)
  - ANXIETY [None]
  - CHOLELITHIASIS [None]
  - INSOMNIA [None]
  - PNEUMONIA [None]
